FAERS Safety Report 13601967 (Version 2)
Quarter: 2017Q4

REPORT INFORMATION
  Report Type: Spontaneous
  Country: US (occurrence: US)
  Receive Date: 20170601
  Receipt Date: 20171027
  Transmission Date: 20180320
  Serious: Yes (Other)
  Sender: FDA-Public Use
  Company Number: US-JNJFOC-20170528616

PATIENT
  Sex: Male
  Weight: 108.86 kg

DRUGS (2)
  1. XARELTO [Suspect]
     Active Substance: RIVAROXABAN
     Indication: THROMBOSIS
     Route: 048
     Dates: start: 2015
  2. VIAGRA [Concomitant]
     Active Substance: SILDENAFIL CITRATE
     Indication: MALE SEXUAL DYSFUNCTION
     Dosage: AS NEEDED
     Route: 065

REACTIONS (6)
  - Type 2 diabetes mellitus [Not Recovered/Not Resolved]
  - Thrombosis [Recovered/Resolved]
  - Neuropathy peripheral [Not Recovered/Not Resolved]
  - Abdominal hernia [Not Recovered/Not Resolved]
  - Aortic aneurysm [Not Recovered/Not Resolved]
  - Rheumatoid arthritis [Not Recovered/Not Resolved]

NARRATIVE: CASE EVENT DATE: 2016
